FAERS Safety Report 6060271-5 (Version None)
Quarter: 2009Q1

REPORT INFORMATION
  Report Type: 
  Country: None (occurrence: None)
  Receive Date: 20090129
  Receipt Date: 20090115
  Transmission Date: 20090719
  Serious: Yes (Hospitalization, Other)
  Sender: FDA-Public Use
  Company Number: GB-DEXPHARM-20090041

PATIENT
  Age: 76 Year
  Sex: Female

DRUGS (6)
  1. OMEPRAZOLE [Suspect]
     Indication: PROPHYLAXIS
     Dosage: 20 MG MILLIGRAM(S) ORAL
     Route: 048
     Dates: start: 20080901, end: 20081121
  2. BENDROFLUMETHAZIDE [Concomitant]
  3. LISINOPRIL [Concomitant]
  4. ACETAMINOPHEN W/ CODEINE [Concomitant]
  5. SIMVASTATIN [Concomitant]
  6. SIMVASTATIN [Concomitant]

REACTIONS (2)
  - RENAL FAILURE [None]
  - TUBULOINTERSTITIAL NEPHRITIS [None]
